FAERS Safety Report 4726687-1 (Version None)
Quarter: 2005Q3

REPORT INFORMATION
  Report Type: 
  Country: None (occurrence: None)
  Receive Date: 20050727
  Receipt Date: 20050623
  Transmission Date: 20060218
  Serious: Yes (Hospitalization)
  Sender: FDA-Public Use
  Company Number: DE-MERCK-0506DEU00196

PATIENT
  Age: 65 Year
  Sex: Female
  Weight: 51 kg

DRUGS (4)
  1. VYTORIN [Suspect]
     Indication: HYPERCHOLESTEROLAEMIA
     Route: 048
     Dates: start: 20050529, end: 20050529
  2. VYTORIN [Suspect]
     Indication: CORONARY ARTERY DISEASE
     Route: 048
     Dates: start: 20050529, end: 20050529
  3. ASPIRIN [Concomitant]
     Indication: CORONARY ARTERY DISEASE
     Route: 048
     Dates: start: 20021001
  4. DYDROGESTERONE AND ESTRADIOL [Concomitant]
     Indication: OESTRADIOL DECREASED
     Route: 065
     Dates: start: 20020101, end: 20050530

REACTIONS (1)
  - SMALL INTESTINE GANGRENE [None]
